FAERS Safety Report 21805803 (Version 2)
Quarter: 2023Q1

REPORT INFORMATION
  Report Type: Report from Study
  Country: FR (occurrence: FR)
  Receive Date: 20230102
  Receipt Date: 20230303
  Transmission Date: 20230417
  Serious: Yes (Other)
  Sender: FDA-Public Use
  Company Number: FR-SA-SAC20221229000740

PATIENT
  Age: 79 Year
  Sex: Male
  Weight: 69.9 kg

DRUGS (22)
  1. ISATUXIMAB [Suspect]
     Active Substance: ISATUXIMAB
     Indication: Plasma cell myeloma
     Dosage: 793 MG, QD
     Dates: start: 20220208, end: 20220208
  2. ISATUXIMAB [Suspect]
     Active Substance: ISATUXIMAB
     Dosage: 695 MG, QD
     Dates: start: 20221214, end: 20221214
  3. LENALIDOMIDE [Suspect]
     Active Substance: LENALIDOMIDE
     Indication: Plasma cell myeloma
     Dosage: 25 MG, QD
     Dates: start: 20220208, end: 20220208
  4. LENALIDOMIDE [Suspect]
     Active Substance: LENALIDOMIDE
     Dosage: 20 MG, QD
     Dates: start: 20221226, end: 20221226
  5. BORTEZOMIB [Suspect]
     Active Substance: BORTEZOMIB
     Indication: Plasma cell myeloma
     Dosage: 2.5 MG, QD
     Dates: start: 20220208, end: 20220208
  6. BORTEZOMIB [Suspect]
     Active Substance: BORTEZOMIB
     Dosage: 2.5 MG, QD
     Dates: start: 20221221, end: 20221221
  7. DEXAMETHASONE [Concomitant]
     Active Substance: DEXAMETHASONE
     Indication: Plasma cell myeloma
     Dosage: 20 MG, QD
     Dates: start: 20220208, end: 20220208
  8. DEXAMETHASONE [Concomitant]
     Active Substance: DEXAMETHASONE
     Dosage: 20 MG, QD
     Dates: start: 20221221, end: 20221221
  9. DEXAMETHASONE [Concomitant]
     Active Substance: DEXAMETHASONE
  10. AMIODARONE [Concomitant]
     Active Substance: AMIODARONE
     Indication: Hypertension
     Dosage: 200 MG, QD
     Dates: start: 2013
  11. AMLODIPINE [Concomitant]
     Active Substance: AMLODIPINE BESYLATE
     Indication: Hypertension
     Dosage: 10 MG, QD
     Dates: start: 2013
  12. AMOXICILLIN [Concomitant]
     Active Substance: AMOXICILLIN
     Indication: Infection prophylaxis
     Dosage: 500 MG, 2/D
     Dates: start: 20220208
  13. APIXABAN [Concomitant]
     Active Substance: APIXABAN
     Indication: Thrombosis prophylaxis
     Dosage: 2.5 MG 2/D
     Dates: start: 202106, end: 20221228
  14. ATORVASTATIN [Concomitant]
     Active Substance: ATORVASTATIN
     Indication: Hypercholesterolaemia
     Dosage: 10 MG, QD
     Dates: start: 2013
  15. BACTRIM [Concomitant]
     Active Substance: SULFAMETHOXAZOLE\TRIMETHOPRIM
     Indication: Infection prophylaxis
     Dosage: 3 UNK, QW
     Dates: start: 20220208
  16. FUROSEMIDE [Concomitant]
     Active Substance: FUROSEMIDE
     Indication: Hypertension
     Dosage: 60 MG, QD
     Dates: start: 2013
  17. LANSOPRAZOLE [Concomitant]
     Active Substance: LANSOPRAZOLE
     Indication: Prophylaxis
     Dosage: 15 MG, QD
     Dates: start: 20220201
  18. RAMIPRIL [Concomitant]
     Active Substance: RAMIPRIL
     Indication: Hypertension
     Dosage: 5 MG 2/D
     Dates: start: 2013
  19. HERBALS\SAW PALMETTO [Concomitant]
     Active Substance: HERBALS\SAW PALMETTO
     Indication: Benign prostatic hyperplasia
     Dosage: 160 MG 2/D
     Dates: start: 2013
  20. VALACYCLOVIR HYDROCHLORIDE [Concomitant]
     Active Substance: VALACYCLOVIR HYDROCHLORIDE
     Indication: Infection prophylaxis
     Dosage: 500 MG 2/D
     Dates: start: 20220208
  21. LENALIDOMIDE [Concomitant]
     Active Substance: LENALIDOMIDE
  22. BORTEZOMIB [Concomitant]
     Active Substance: BORTEZOMIB

REACTIONS (1)
  - Thrombocytopenia [Recovered/Resolved]

NARRATIVE: CASE EVENT DATE: 20221227
